FAERS Safety Report 6880668-0 (Version None)
Quarter: 2010Q3

REPORT INFORMATION
  Report Type: 
  Country: None (occurrence: None)
  Receive Date: 20100728
  Receipt Date: 20100722
  Transmission Date: 20110219
  Serious: Yes (Hospitalization)
  Sender: FDA-Public Use
  Company Number: US-BIOGENIDEC-2009BI023921

PATIENT
  Age: 41 Year
  Sex: Female

DRUGS (9)
  1. TYSABRI [Suspect]
     Indication: MULTIPLE SCLEROSIS
     Route: 042
     Dates: start: 20090610
  2. CLONAZEPAM [Concomitant]
     Route: 048
     Dates: start: 20091020
  3. CYMBALTA [Concomitant]
     Route: 048
     Dates: start: 20090115
  4. PREGABALIN [Concomitant]
     Route: 048
     Dates: start: 20090126
  5. DITROPAN XL [Concomitant]
     Route: 048
     Dates: start: 20090126
  6. HYDROMORPHONE [Concomitant]
     Dates: start: 20081022
  7. PROPRANOLOL [Concomitant]
     Route: 048
     Dates: start: 20090622
  8. PROTONIX [Concomitant]
     Route: 048
     Dates: start: 20090622
  9. ZOLPIDEM [Concomitant]
     Route: 048
     Dates: start: 20090323

REACTIONS (3)
  - ANAEMIA [None]
  - DYSPHAGIA [None]
  - PNEUMONIA ASPIRATION [None]
